FAERS Safety Report 15556807 (Version 2)
Quarter: 2018Q4

REPORT INFORMATION
  Report Type: Spontaneous
  Country: HU (occurrence: HU)
  Receive Date: 20181026
  Receipt Date: 20181128
  Transmission Date: 20190205
  Serious: Yes (Death)
  Sender: FDA-Public Use
  Company Number: PHHY2018HU138624

PATIENT

DRUGS (7)
  1. FLUDARABINE [Suspect]
     Active Substance: FLUDARABINE PHOSPHATE
     Indication: PRODUCT USED FOR UNKNOWN INDICATION
     Dosage: 40 MG/M2, QD
     Route: 065
  2. LEVOFLOXACIN. [Suspect]
     Active Substance: LEVOFLOXACIN
     Indication: INFECTION PROPHYLAXIS
     Dosage: UNK
     Route: 065
  3. POSACONAZOLE [Concomitant]
     Active Substance: POSACONAZOLE
     Indication: ANTIBIOTIC PROPHYLAXIS
     Dosage: UNK
     Route: 065
  4. THIOTEPA. [Concomitant]
     Active Substance: THIOTEPA
     Indication: PRODUCT USED FOR UNKNOWN INDICATION
     Dosage: 10 MG/KG, QD
     Route: 065
  5. ACICLOVIR [Concomitant]
     Active Substance: ACYCLOVIR
     Indication: ANTIBIOTIC PROPHYLAXIS
     Dosage: UNK
     Route: 065
  6. URSODEOXYCHOLIC ACID [Concomitant]
     Active Substance: URSODIOL
     Indication: PROPHYLAXIS
     Dosage: 12 MG/KG, UNK
     Route: 065
  7. HEPARIN [Concomitant]
     Active Substance: HEPARIN SODIUM
     Indication: PROPHYLAXIS
     Dosage: 100 IU/KG, UNK
     Route: 065

REACTIONS (2)
  - Cytopenia [Fatal]
  - Haemophagocytic lymphohistiocytosis [Fatal]
